FAERS Safety Report 6814655-5 (Version None)
Quarter: 2010Q3

REPORT INFORMATION
  Report Type: 
  Country: None (occurrence: None)
  Receive Date: 20100702
  Receipt Date: 20100621
  Transmission Date: 20110219
  Serious: Yes (Death, Other)
  Sender: FDA-Public Use
  Company Number: JP-GENZYME-CLOF-1000959

PATIENT
  Sex: Female

DRUGS (16)
  1. CLOFARABINE [Suspect]
     Indication: ACUTE LYMPHOCYTIC LEUKAEMIA
     Dosage: 25 MG, QD
     Route: 042
     Dates: start: 20100407, end: 20100421
  2. CYCLOPHOSPHAMIDE [Suspect]
     Indication: ACUTE LYMPHOCYTIC LEUKAEMIA
     Dosage: 400 MG/M2, QDX5
     Route: 042
     Dates: start: 20100407, end: 20100421
  3. ETOPOSIDE [Suspect]
     Indication: ACUTE LYMPHOCYTIC LEUKAEMIA
     Dosage: 150 MG/M2, QD
     Route: 042
     Dates: start: 20100407, end: 20100421
  4. GENTAMICIN [Concomitant]
     Indication: ANTIBIOTIC THERAPY
     Dosage: UNK
     Dates: start: 20100221, end: 20100228
  5. GENTAMICIN [Concomitant]
     Dosage: UNK
     Dates: start: 20100316, end: 20100323
  6. GENTAMICIN [Concomitant]
     Dosage: UNK
     Dates: start: 20100405, end: 20100415
  7. GENTAMICIN [Concomitant]
     Dosage: UNK
     Dates: start: 20100422, end: 20100428
  8. GENTAMICIN [Concomitant]
     Dosage: UNK
     Dates: start: 20100430, end: 20100506
  9. TAZOCIN [Concomitant]
     Indication: ANTIBIOTIC THERAPY
     Dosage: UNK
     Dates: start: 20100221, end: 20100304
  10. TAZOCIN [Concomitant]
     Dosage: UNK
     Dates: start: 20100316, end: 20100322
  11. TAZOCIN [Concomitant]
     Dosage: UNK
     Dates: start: 20100405, end: 20100413
  12. TAZOCIN [Concomitant]
     Dosage: UNK
     Dates: start: 20100422, end: 20100427
  13. MEROPENEM [Concomitant]
     Indication: ANTIBIOTIC THERAPY
     Dosage: UNK
     Dates: start: 20100321, end: 20100401
  14. MEROPENEM [Concomitant]
     Dosage: UNK
     Dates: start: 20100427, end: 20100506
  15. NEUPOGEN [Concomitant]
     Indication: PRODUCT USED FOR UNKNOWN INDICATION
     Dosage: UNK
     Dates: start: 20100505
  16. VANCOMYCIN [Concomitant]
     Indication: ANTIBIOTIC THERAPY
     Dosage: UNK
     Dates: start: 20100506, end: 20100507

REACTIONS (3)
  - BONE MARROW FAILURE [None]
  - PERIRECTAL ABSCESS [None]
  - PSEUDOMONAL SEPSIS [None]
